FAERS Safety Report 4269324-5 (Version None)
Quarter: 2004Q1

REPORT INFORMATION
  Report Type: 
  Country: None (occurrence: None)
  Receive Date: 20040108
  Receipt Date: 20031226
  Transmission Date: 20041129
  Serious: Yes (Life-Threatening, Hospitalization, Other)
  Sender: FDA-Public Use
  Company Number: 2003120533

PATIENT
  Age: 63 Year
  Sex: Female
  Weight: 45 kg

DRUGS (9)
  1. CARDENALIN (DOXAZOSIN) [Suspect]
     Indication: ILL-DEFINED DISORDER
     Dosage: 86 MG (ONCE), ORAL
     Route: 048
     Dates: start: 19970101
  2. SPIRONOLACTONE [Suspect]
     Indication: ILL-DEFINED DISORDER
     Dosage: 725 MG (ONCE), ORAL
     Route: 048
     Dates: start: 19970101, end: 20021107
  3. NIFEDIPINE [Suspect]
     Indication: ILL-DEFINED DISORDER
     Dosage: 1740 (ONCE), ORAL
     Route: 048
     Dates: start: 19970101, end: 20021107
  4. METOPROLOL TARTRATE [Suspect]
     Indication: ILL-DEFINED DISORDER
     Dosage: 2240 (ONCE), ORAL
     Route: 048
     Dates: start: 19970101, end: 20021107
  5. LOSARTAN POTASSIUM (LOSARTAN POTASSIUM) [Suspect]
     Indication: ILL-DEFINED DISORDER
     Dosage: 1500 (ONCE), ORAL
     Route: 048
     Dates: start: 19970101, end: 20021107
  6. ETIZOLAM (ETIZOLAM) [Suspect]
     Indication: ILL-DEFINED DISORDER
     Dosage: 19.5 (ONCE), ORAL
     Route: 048
     Dates: start: 19970101, end: 20021107
  7. ESTAZOLAM [Concomitant]
  8. RISPERIDONE [Concomitant]
  9. RILMAZAFONE (RILMAZAFONE) [Concomitant]

REACTIONS (18)
  - BLOOD POTASSIUM INCREASED [None]
  - BODY TEMPERATURE DECREASED [None]
  - BRADYCARDIA [None]
  - COMA [None]
  - DEPRESSION [None]
  - GENERALISED OEDEMA [None]
  - HAEMODIALYSIS [None]
  - HAEMODYNAMIC INSTABILITY [None]
  - HEART RATE DECREASED [None]
  - HEMIPLEGIA [None]
  - HYPOTENSION [None]
  - LOSS OF CONSCIOUSNESS [None]
  - MULTIPLE DRUG OVERDOSE [None]
  - PLEURAL EFFUSION [None]
  - PULMONARY OEDEMA [None]
  - SHOCK [None]
  - SUICIDE ATTEMPT [None]
  - VOCAL CORD PARALYSIS [None]
